FAERS Safety Report 16532025 (Version 1)
Quarter: 2019Q3

REPORT INFORMATION
  Report Type: Spontaneous
  Country: IT (occurrence: IT)
  Receive Date: 20190704
  Receipt Date: 20190704
  Transmission Date: 20191004
  Serious: Yes (Other)
  Sender: FDA-Public Use
  Company Number: IT-ACCORD-136951

PATIENT
  Age: 22 Year
  Sex: Male

DRUGS (6)
  1. PREGABALIN. [Suspect]
     Active Substance: PREGABALIN
     Indication: HEADACHE
     Route: 065
  2. VALPROATE [Suspect]
     Active Substance: VALPROIC ACID
     Indication: HEADACHE
     Route: 065
  3. ONABONT-A [Suspect]
     Active Substance: ONABOTULINUMTOXINA
     Indication: HEADACHE
     Route: 050
  4. TOPIRAMATE. [Suspect]
     Active Substance: TOPIRAMATE
     Indication: HEADACHE
     Route: 065
  5. INDOMETACIN [Suspect]
     Active Substance: INDOMETHACIN
     Indication: HEADACHE
     Route: 065
  6. AMITRIPTYLINE [Suspect]
     Active Substance: AMITRIPTYLINE
     Indication: HEADACHE
     Route: 065

REACTIONS (1)
  - Treatment failure [Unknown]
